FAERS Safety Report 9853614 (Version 1)
Quarter: 2014Q1

REPORT INFORMATION
  Report Type: Spontaneous
  Country: US (occurrence: US)
  Receive Date: 20140129
  Receipt Date: 20140129
  Transmission Date: 20141002
  Serious: Yes (Death)
  Sender: FDA-Public Use
  Company Number: US-PFIZER INC-2014026713

PATIENT
  Age: 73 Year
  Sex: Female

DRUGS (1)
  1. REVATIO [Suspect]
     Indication: SYSTEMIC SCLEROSIS
     Dosage: 20 MG, 3X/DAY
     Dates: start: 20131023

REACTIONS (3)
  - Scleroderma [Fatal]
  - Pneumonia [Fatal]
  - Off label use [Unknown]
